FAERS Safety Report 11118017 (Version 1)
Quarter: 2015Q2

REPORT INFORMATION
  Report Type: Spontaneous
  Country: US (occurrence: None)
  Receive Date: 20150514
  Receipt Date: 20150514
  Transmission Date: 20150821
  Serious: Yes (Hospitalization)
  Sender: FDA-Public Use
  Company Number: ABR_02201_2015

PATIENT
  Age: 18 Year
  Sex: Female

DRUGS (1)
  1. LAMOTRIGINE. [Suspect]
     Active Substance: LAMOTRIGINE
     Indication: BIPOLAR DISORDER
     Dosage: DF

REACTIONS (6)
  - Ureteric perforation [None]
  - Toxic epidermal necrolysis [None]
  - Hydronephrosis [None]
  - Ureteric obstruction [None]
  - Stevens-Johnson syndrome [None]
  - Acute kidney injury [None]
